FAERS Safety Report 20553052 (Version 1)
Quarter: 2022Q1

REPORT INFORMATION
  Report Type: Spontaneous
  Country: US (occurrence: US)
  Receive Date: 20220304
  Receipt Date: 20220304
  Transmission Date: 20220423
  Serious: No
  Sender: FDA-Public Use
  Company Number: US-SA-SAC20220301000499

PATIENT
  Sex: Female

DRUGS (21)
  1. AUBAGIO [Suspect]
     Active Substance: TERIFLUNOMIDE
     Indication: Seizure
     Dosage: 14 MG, QD
     Route: 048
  2. ATIVAN [Concomitant]
     Active Substance: LORAZEPAM
  3. DEPAKOTE [Concomitant]
     Active Substance: DIVALPROEX SODIUM
  4. PRAVASTATIN SODIUM [Concomitant]
     Active Substance: PRAVASTATIN SODIUM
  5. BACLOFEN [Concomitant]
     Active Substance: BACLOFEN
  6. SERTRALINE [Concomitant]
     Active Substance: SERTRALINE HYDROCHLORIDE
  7. VIMPAT [Concomitant]
     Active Substance: LACOSAMIDE
  8. NEXIUM I.V. [Concomitant]
     Active Substance: ESOMEPRAZOLE SODIUM
  9. NASONEX [Concomitant]
     Active Substance: MOMETASONE FUROATE
  10. CYCLOBENZAPRINE HYDROCHLORIDE [Concomitant]
     Active Substance: CYCLOBENZAPRINE HYDROCHLORIDE
  11. VALPROIC ACID [Concomitant]
     Active Substance: VALPROIC ACID
  12. PREDNISONE [Concomitant]
     Active Substance: PREDNISONE
  13. TIZANIDINE HYDROCHLORIDE [Concomitant]
     Active Substance: TIZANIDINE HYDROCHLORIDE
  14. MEDROXYPROGESTERONE ACETATE [Concomitant]
     Active Substance: MEDROXYPROGESTERONE ACETATE
  15. LYRICA [Concomitant]
     Active Substance: PREGABALIN
  16. DEPAKOTE ER [Concomitant]
     Active Substance: DIVALPROEX SODIUM
  17. TOPIRAMATE [Concomitant]
     Active Substance: TOPIRAMATE
  18. COPAXONE [Concomitant]
     Active Substance: GLATIRAMER ACETATE
  19. NITROFURANTOIN MONOHYDRATE [Concomitant]
     Active Substance: NITROFURANTOIN MONOHYDRATE
  20. NITROFURANTOIN MACROCRYSTALS [Concomitant]
     Active Substance: NITROFURANTOIN
  21. MAGNESIUM [Concomitant]
     Active Substance: MAGNESIUM

REACTIONS (1)
  - Product use in unapproved indication [Unknown]
